FAERS Safety Report 8455390-X (Version None)
Quarter: 2012Q2

REPORT INFORMATION
  Report Type: 
  Country: None (occurrence: None)
  Receive Date: 20120621
  Receipt Date: 20120611
  Transmission Date: 20120825
  Serious: Yes (Other)
  Sender: FDA-Public Use
  Company Number: JP-VERTEX PHARMACEUTICALS INC.-AE-2012-008855

PATIENT
  Age: 50 Year
  Sex: Female

DRUGS (3)
  1. PEG-INTRON [Concomitant]
     Route: 051
     Dates: start: 20120502
  2. RIBAVIRIN [Concomitant]
     Route: 048
     Dates: start: 20120502
  3. TELAVIC (TELAPREVIR) [Suspect]
     Route: 048
     Dates: start: 20120502, end: 20120601

REACTIONS (1)
  - RASH [None]
